FAERS Safety Report 7813332-1 (Version None)
Quarter: 2011Q4

REPORT INFORMATION
  Report Type: 
  Country: None (occurrence: None)
  Receive Date: 20111013
  Receipt Date: 20111009
  Transmission Date: 20120403
  Serious: Yes (Other)
  Sender: FDA-Public Use
  Company Number: CN-ROCHE-1003217

PATIENT
  Sex: Male
  Weight: 65 kg

DRUGS (9)
  1. MYCOPHENOLATE MOFETIL (CELLCEPT) [Suspect]
     Route: 048
  2. MYCOPHENOLATE MOFETIL (CELLCEPT) [Suspect]
     Route: 048
  3. PROGRAF [Concomitant]
     Indication: RENAL TRANSPLANT
     Route: 048
     Dates: start: 20051110
  4. PREDNISONE [Concomitant]
     Route: 048
  5. MYCOPHENOLATE MOFETIL (CELLCEPT) [Suspect]
     Indication: RENAL TRANSPLANT
     Route: 048
     Dates: start: 20051110
  6. PROGRAF [Concomitant]
     Route: 048
  7. PREDNISONE [Concomitant]
     Route: 048
  8. PROGRAF [Concomitant]
     Route: 048
  9. PREDNISONE [Concomitant]
     Indication: RENAL TRANSPLANT
     Route: 048
     Dates: start: 20051110

REACTIONS (1)
  - CEREBROVASCULAR ACCIDENT [None]
